FAERS Safety Report 10557072 (Version 1)
Quarter: 2014Q4

REPORT INFORMATION
  Report Type: Spontaneous
  Country: US (occurrence: None)
  Receive Date: 20141029
  Receipt Date: 20141029
  Transmission Date: 20150529
  Serious: Yes (Disabling)
  Sender: FDA-Public Use
  Company Number: None

PATIENT
  Age: 58 Year
  Sex: Male
  Weight: 104.33 kg

DRUGS (1)
  1. LEVOFLOXACIN 500 MG LUPIN [Suspect]
     Active Substance: LEVOFLOXACIN
     Indication: SINUSITIS
     Route: 048
     Dates: start: 20141016, end: 20141017

REACTIONS (2)
  - Pain in extremity [None]
  - Hypoaesthesia [None]

NARRATIVE: CASE EVENT DATE: 20141016
